FAERS Safety Report 11210847 (Version 1)
Quarter: 2015Q2

REPORT INFORMATION
  Report Type: Report from Study
  Country: BE (occurrence: BE)
  Receive Date: 20150622
  Receipt Date: 20150622
  Transmission Date: 20150821
  Serious: Yes (Hospitalization)
  Sender: FDA-Public Use
  Company Number: BE-AMGEN-E2B_00039346

PATIENT
  Age: 79 Year
  Sex: Female

DRUGS (1)
  1. ETANERCEPT [Suspect]
     Active Substance: ETANERCEPT
     Indication: RHEUMATOID ARTHRITIS
     Dosage: 50 MG, QWK
     Route: 058
     Dates: start: 20070906

REACTIONS (2)
  - Hand fracture [Recovered/Resolved]
  - Internal fixation of fracture [Recovered/Resolved]

NARRATIVE: CASE EVENT DATE: 20100422
